FAERS Safety Report 7910090-7 (Version None)
Quarter: 2011Q4

REPORT INFORMATION
  Report Type: 
  Country: None (occurrence: None)
  Receive Date: 20111111
  Receipt Date: 20111028
  Transmission Date: 20120403
  Serious: Yes (Death, Hospitalization)
  Sender: FDA-Public Use
  Company Number: DE-ROCHE-1008222

PATIENT
  Sex: Female
  Weight: 64 kg

DRUGS (3)
  1. MABTHERA [Suspect]
     Indication: VASCULITIS
     Route: 065
     Dates: start: 20110328
  2. MABTHERA [Suspect]
     Route: 065
     Dates: start: 20110427
  3. STEROID NOS [Suspect]
     Indication: PRODUCT USED FOR UNKNOWN INDICATION
     Route: 065

REACTIONS (2)
  - PNEUMONIA FUNGAL [None]
  - ILEUS [None]
